FAERS Safety Report 21563331 (Version 2)
Quarter: 2025Q2

REPORT INFORMATION
  Report Type: Spontaneous
  Country: PT (occurrence: PT)
  Receive Date: 20221108
  Receipt Date: 20250618
  Transmission Date: 20250716
  Serious: Yes (Other)
  Sender: AUROBINDO
  Company Number: PT-AZEVEDOSP-2022-00332

PATIENT
  Age: 70 Year
  Sex: Male

DRUGS (3)
  1. ACYCLOVIR [Suspect]
     Active Substance: ACYCLOVIR
     Indication: Evidence based treatment
     Route: 042
     Dates: start: 201912
  2. TACROLIMUS [Concomitant]
     Active Substance: TACROLIMUS
     Indication: Product used for unknown indication
     Route: 065
  3. MYCOPHENOLIC ACID [Concomitant]
     Active Substance: MYCOPHENOLIC ACID
     Indication: Product used for unknown indication
     Dosage: 360 MILLIGRAM, TWO TIMES A DAY
     Route: 065

REACTIONS (1)
  - Condition aggravated [Recovered/Resolved]
